FAERS Safety Report 7937964-5 (Version None)
Quarter: 2011Q4

REPORT INFORMATION
  Report Type: 
  Country: None (occurrence: None)
  Receive Date: 20111123
  Receipt Date: 20111115
  Transmission Date: 20120403
  Serious: Yes (Disabling)
  Sender: FDA-Public Use
  Company Number: CA-ASTRAZENECA-2011SE69087

PATIENT
  Age: 56 Year
  Sex: Female
  Weight: 61.2 kg

DRUGS (4)
  1. CELEXA [Concomitant]
     Route: 048
  2. ZOPICLONE [Concomitant]
     Route: 048
  3. CALCIUM AND VITAMIN D [Concomitant]
  4. ARIMIDEX [Suspect]
     Route: 048

REACTIONS (18)
  - HOT FLUSH [None]
  - ARTHRALGIA [None]
  - ASTHENIA [None]
  - FATIGUE [None]
  - OROPHARYNGEAL PAIN [None]
  - VOMITING [None]
  - POLYMYALGIA RHEUMATICA [None]
  - SOMNOLENCE [None]
  - BONE PAIN [None]
  - DIARRHOEA [None]
  - CHEST PAIN [None]
  - GRIP STRENGTH DECREASED [None]
  - MUSCULOSKELETAL PAIN [None]
  - FACIAL PAIN [None]
  - IMPAIRED WORK ABILITY [None]
  - JOINT STIFFNESS [None]
  - FIBROMYALGIA [None]
  - PAIN IN JAW [None]
